FAERS Safety Report 8605833-3 (Version None)
Quarter: 2012Q3

REPORT INFORMATION
  Report Type: 
  Country: None (occurrence: None)
  Receive Date: 20120820
  Receipt Date: 20120809
  Transmission Date: 20120928
  Serious: Yes (Congenital Anomaly)
  Sender: FDA-Public Use
  Company Number: US-GLAXOSMITHKLINE-A0989959A

PATIENT
  Sex: Female

DRUGS (6)
  1. MARIJUANA [Suspect]
     Route: 065
  2. METHAMPHETAMINE HYDROCHLORIDE [Suspect]
     Route: 065
  3. CLONAZEPAM [Concomitant]
  4. VICODIN ES [Concomitant]
  5. MOTRIN [Concomitant]
  6. PAXIL [Suspect]
     Indication: DEPRESSION
     Dosage: 40MG PER DAY
     Route: 064

REACTIONS (4)
  - HYPOTONIA [None]
  - GROSS MOTOR DELAY [None]
  - PLAGIOCEPHALY [None]
  - FOETAL EXPOSURE DURING PREGNANCY [None]
